FAERS Safety Report 7096392-8 (Version None)
Quarter: 2010Q4

REPORT INFORMATION
  Report Type: 
  Country: None (occurrence: None)
  Receive Date: 20101109
  Receipt Date: 20101109
  Transmission Date: 20110411
  Serious: Yes (Life-Threatening, Hospitalization, Other)
  Sender: FDA-Public Use
  Company Number: None

PATIENT
  Sex: Female
  Weight: 85.2762 kg

DRUGS (3)
  1. PROZAC [Suspect]
     Indication: DEMENTIA
     Dosage: 20 MG 1 A DAY
  2. PROZAC [Suspect]
     Indication: DEPRESSION
     Dosage: 20 MG 1 A DAY
  3. FLUOXETINE [Concomitant]

REACTIONS (5)
  - BALANCE DISORDER [None]
  - CONVULSION [None]
  - FATIGUE [None]
  - FEELING ABNORMAL [None]
  - MEMORY IMPAIRMENT [None]
